FAERS Safety Report 6223809-0 (Version None)
Quarter: 2009Q2

REPORT INFORMATION
  Report Type: 
  Country: None (occurrence: None)
  Receive Date: 20090611
  Receipt Date: 20090514
  Transmission Date: 20091009
  Serious: No
  Sender: FDA-Public Use
  Company Number: US-ABBOTT-09P-163-0557878-00

PATIENT
  Sex: Female
  Weight: 86.26 kg

DRUGS (5)
  1. HUMIRA [Suspect]
     Indication: RHEUMATOID ARTHRITIS
     Route: 058
     Dates: start: 20090213
  2. HUMIRA [Suspect]
     Dates: start: 20090414, end: 20090428
  3. VICODIN [Concomitant]
     Indication: PAIN
  4. ATENOLOL [Concomitant]
     Indication: HEART RATE IRREGULAR
  5. METHOTREXATE [Concomitant]
     Indication: DRUG USE FOR UNKNOWN INDICATION

REACTIONS (7)
  - CARDIAC MURMUR [None]
  - COUGH [None]
  - DIARRHOEA [None]
  - HERPES ZOSTER [None]
  - HYPERAESTHESIA [None]
  - NEURALGIA [None]
  - PYREXIA [None]
